FAERS Safety Report 9760309 (Version 2)
Quarter: 2014Q1

REPORT INFORMATION
  Report Type: Spontaneous
  Country: FR (occurrence: FR)
  Receive Date: 20131216
  Receipt Date: 20140310
  Transmission Date: 20141002
  Serious: Yes (Hospitalization)
  Sender: FDA-Public Use
  Company Number: FR-GLAXOSMITHKLINE-B0950793A

PATIENT
  Age: 78 Year
  Sex: Male

DRUGS (2)
  1. LAMICTAL [Suspect]
     Indication: STATUS EPILEPTICUS
     Route: 048
     Dates: start: 201309, end: 20131031
  2. CEFIXIME [Suspect]
     Indication: PYELONEPHRITIS
     Route: 048
     Dates: end: 20131031

REACTIONS (26)
  - Stevens-Johnson syndrome [Recovered/Resolved]
  - Rash [Recovered/Resolved]
  - Dermatitis exfoliative [Recovered/Resolved]
  - Rash maculo-papular [Recovered/Resolved]
  - Urticaria [Recovered/Resolved]
  - Skin lesion [Recovered/Resolved]
  - Skin disorder [Recovered/Resolved]
  - Nikolsky^s sign [Recovered/Resolved]
  - Cheilitis [Recovered/Resolved]
  - Mucous membrane disorder [Recovered/Resolved]
  - Stomatitis [Recovered/Resolved]
  - Palatal disorder [Recovered/Resolved]
  - Respiratory tract congestion [Recovered/Resolved]
  - Pyrexia [Recovered/Resolved]
  - Leukocytosis [Recovered/Resolved]
  - Sepsis [Recovered/Resolved]
  - Chills [Recovered/Resolved]
  - Sinus tachycardia [Recovered/Resolved]
  - Oliguria [Recovered/Resolved]
  - Confusional state [Recovered/Resolved]
  - Hypotension [Recovered/Resolved]
  - Agitation [Recovered/Resolved]
  - Ventricular extrasystoles [Recovered/Resolved]
  - Metabolic acidosis [Recovered/Resolved]
  - Gamma-glutamyltransferase increased [Recovered/Resolved]
  - Renal failure acute [Recovered/Resolved]
